FAERS Safety Report 9602278 (Version 1)
Quarter: 2013Q4

REPORT INFORMATION
  Report Type: Report from Study
  Country: LB (occurrence: LB)
  Receive Date: 20131007
  Receipt Date: 20131007
  Transmission Date: 20140711
  Serious: Yes (Hospitalization)
  Sender: FDA-Public Use
  Company Number: LB-SA-2013SA096852

PATIENT
  Age: 35 Year
  Sex: Female

DRUGS (4)
  1. LANTUS SOLOSTAR [Suspect]
     Indication: DIABETES MELLITUS
     Dosage: DOSE:34 UNIT(S)
     Route: 058
     Dates: start: 2012
  2. SOLOSTAR [Concomitant]
  3. GLUCOVANCE [Concomitant]
     Indication: DIABETES MELLITUS
     Route: 048
  4. LIPANTHYL [Concomitant]
     Route: 048

REACTIONS (3)
  - Cholecystectomy [Recovering/Resolving]
  - Aphagia [Recovering/Resolving]
  - Vomiting [Recovering/Resolving]
